FAERS Safety Report 8352507-2 (Version None)
Quarter: 2012Q2

REPORT INFORMATION
  Report Type: 
  Country: None (occurrence: None)
  Receive Date: 20120511
  Receipt Date: 20120507
  Transmission Date: 20120825
  Serious: No
  Sender: FDA-Public Use
  Company Number: PHEH2011US01118

PATIENT
  Sex: Female

DRUGS (2)
  1. GILENYA [Suspect]
     Indication: MULTIPLE SCLEROSIS
     Dosage: 0.5 MG, QD
     Route: 048
     Dates: start: 20110415
  2. FAMPRIDINE [Concomitant]
     Dosage: UNK UKN, UNK

REACTIONS (6)
  - VIRAL INFECTION [None]
  - MALAISE [None]
  - NASAL DISCHARGE DISCOLOURATION [None]
  - CONDITION AGGRAVATED [None]
  - BACTERIAL INFECTION [None]
  - SEASONAL ALLERGY [None]
